FAERS Safety Report 6455414-5 (Version None)
Quarter: 2009Q4

REPORT INFORMATION
  Report Type: 
  Country: None (occurrence: None)
  Receive Date: 20091125
  Receipt Date: 20090818
  Transmission Date: 20100525
  Serious: No
  Sender: FDA-Public Use
  Company Number: US-ABBOTT-09P-163-0589115-00

PATIENT
  Sex: Male
  Weight: 106.69 kg

DRUGS (6)
  1. SIMCOR [Suspect]
     Indication: BLOOD CHOLESTEROL
     Dosage: 500/20MG
     Dates: start: 20090301
  2. PLAVIX [Concomitant]
     Indication: DRUG USE FOR UNKNOWN INDICATION
  3. ASPIRIN [Concomitant]
     Indication: DRUG USE FOR UNKNOWN INDICATION
  4. METOPROLOL TARTRATE [Concomitant]
     Indication: ARRHYTHMIA
  5. ALTACE [Concomitant]
     Indication: PROPHYLAXIS
  6. ALTACE [Concomitant]
     Indication: RENAL DISORDER

REACTIONS (1)
  - BLOOD CHOLESTEROL INCREASED [None]
